FAERS Safety Report 8774750 (Version 1)
Quarter: 2012Q4

REPORT INFORMATION
  Report Type: 
  Country: US (occurrence: US)
  Receive Date: 20120910
  Receipt Date: 20120910
  Transmission Date: 20130627
  Serious: No
  Sender: FDA-Public Use
  Company Number: US-PFIZER INC-2012218976

PATIENT
  Age: 52 Year
  Sex: Female
  Weight: 56.69 kg

DRUGS (2)
  1. EFFEXOR [Suspect]
     Dosage: UNK
  2. PROZAC [Suspect]
     Dosage: UNK

REACTIONS (2)
  - Therapeutic nerve ablation [Unknown]
  - Pain [Unknown]
